FAERS Safety Report 10049420 (Version 2)
Quarter: 2014Q2

REPORT INFORMATION
  Report Type: Spontaneous
  Country: US (occurrence: US)
  Receive Date: 20140401
  Receipt Date: 20140505
  Transmission Date: 20141212
  Serious: Yes (Other)
  Sender: FDA-Public Use
  Company Number: US-AMGEN-USASP2014021233

PATIENT
  Age: 56 Year
  Sex: Female
  Weight: 68.3 kg

DRUGS (6)
  1. PROLIA [Suspect]
     Indication: OSTEOPOROSIS POSTMENOPAUSAL
     Dosage: 60 MG, ONCE
     Route: 058
     Dates: start: 20140109
  2. PREDNISONE [Suspect]
     Indication: PRODUCT USED FOR UNKNOWN INDICATION
     Dosage: 15 MG, QD
     Route: 048
     Dates: start: 20130626
  3. MYFORTIC [Concomitant]
     Dosage: 720 MG, QD
     Route: 048
     Dates: start: 20130220
  4. REVATIO [Concomitant]
     Dosage: 20 MG, QD
     Route: 048
  5. CARDIAN [Concomitant]
     Dosage: 30 MG, QD
     Route: 048
  6. PRILOSEC                           /00661201/ [Concomitant]
     Dosage: UNK UNK, BID
     Route: 048

REACTIONS (21)
  - Nausea [Recovered/Resolved]
  - Vomiting [Recovered/Resolved]
  - Aphagia [Unknown]
  - Hypersensitivity [Recovered/Resolved]
  - Lip blister [Recovered/Resolved]
  - Chills [Recovered/Resolved]
  - Pyrexia [Recovered/Resolved]
  - Blister [Recovered/Resolved]
  - Bone pain [Not Recovered/Not Resolved]
  - Pain in extremity [Not Recovered/Not Resolved]
  - Hordeolum [Not Recovered/Not Resolved]
  - Gastritis [Unknown]
  - Lip swelling [Unknown]
  - Gait disturbance [Unknown]
  - Paraesthesia oral [Unknown]
  - Swollen tongue [Unknown]
  - Oral mucosal blistering [Recovering/Resolving]
  - Alopecia [Unknown]
  - Malaise [Unknown]
  - Back pain [Unknown]
  - Rash [Unknown]
